FAERS Safety Report 17552656 (Version 8)
Quarter: 2023Q2

REPORT INFORMATION
  Report Type: Report from Study
  Country: CN (occurrence: CN)
  Receive Date: 20200317
  Receipt Date: 20230428
  Transmission Date: 20230721
  Serious: Yes (Hospitalization)
  Sender: FDA-Public Use
  Company Number: NVSC2020CN064506

PATIENT
  Age: 64 Year
  Sex: Female
  Weight: 67.8 kg

DRUGS (9)
  1. KISQALI [Suspect]
     Active Substance: RIBOCICLIB
     Indication: HER2 negative breast cancer
     Dosage: UNK
     Route: 048
     Dates: start: 20190905, end: 20200304
  2. KISQALI [Suspect]
     Active Substance: RIBOCICLIB
     Dosage: UNK
     Route: 048
     Dates: start: 20200310
  3. LETROZOLE [Suspect]
     Active Substance: LETROZOLE
     Indication: HER2 negative breast cancer
     Dosage: 2.5 MG, DAILY
     Route: 048
     Dates: start: 20190905
  4. CANDESARTAN [Concomitant]
     Active Substance: CANDESARTAN
     Indication: Hypertension
     Dosage: ESTER TABLETS
     Route: 065
     Dates: start: 2007
  5. ASPIRIN [Concomitant]
     Active Substance: ASPIRIN
     Indication: Thrombosis prophylaxis
     Dosage: UNK
     Route: 065
     Dates: start: 2015
  6. NICERGOLINE [Concomitant]
     Active Substance: NICERGOLINE
     Indication: Cerebral thrombosis
     Dosage: UNK
     Route: 065
     Dates: start: 2018
  7. BISOPROLOL FUMARATE [Concomitant]
     Active Substance: BISOPROLOL FUMARATE
     Indication: Hypotension
     Dosage: UNK
     Route: 065
     Dates: start: 20190911, end: 20200701
  8. RECOMBINANT HUMAN GRANULOCYTE COLONY STIMULAT [Concomitant]
     Indication: Neutrophil count decreased
     Dosage: UNK
     Route: 065
     Dates: start: 20200218, end: 20200218
  9. RECOMBINANT HUMAN GRANULOCYTE COLONY STIMULAT [Concomitant]
     Indication: White blood cell count decreased

REACTIONS (1)
  - Eczema [Recovered/Resolved]

NARRATIVE: CASE EVENT DATE: 20200305
